FAERS Safety Report 9027963 (Version 2)
Quarter: 2013Q1

REPORT INFORMATION
  Report Type: Spontaneous
  Country: US (occurrence: US)
  Receive Date: 20130123
  Receipt Date: 20130125
  Transmission Date: 20140127
  Serious: No
  Sender: FDA-Public Use
  Company Number: US-PFIZER INC-2013024104

PATIENT
  Age: 66 Year
  Sex: Female

DRUGS (1)
  1. ZOSYN [Suspect]
     Indication: PNEUMONIA
     Dosage: UNK, WEEKLY
     Route: 042

REACTIONS (1)
  - No adverse event [Unknown]
